FAERS Safety Report 5661862-3 (Version None)
Quarter: 2008Q1

REPORT INFORMATION
  Report Type: 
  Country: None (occurrence: None)
  Receive Date: 20080312
  Receipt Date: 20080229
  Transmission Date: 20080703
  Serious: Yes (Life-Threatening)
  Sender: FDA-Public Use
  Company Number: JP-SANOFI-SYNTHELABO-A01200800027

PATIENT
  Sex: Male

DRUGS (1)
  1. MYTELASE [Suspect]
     Indication: MUSCULAR WEAKNESS
     Dosage: 15 MG
     Route: 048
     Dates: start: 20061004, end: 20071223

REACTIONS (1)
  - CARDIO-RESPIRATORY ARREST [None]
